FAERS Safety Report 10248722 (Version 1)
Quarter: 2014Q2

REPORT INFORMATION
  Report Type: Spontaneous
  Country: US (occurrence: None)
  Receive Date: 20140617
  Receipt Date: 20140617
  Transmission Date: 20141212
  Serious: Yes (Other)
  Sender: FDA-Public Use
  Company Number: None

PATIENT
  Age: 24 Year
  Sex: Male
  Weight: 139 kg

DRUGS (4)
  1. DIVALPROEX SODIUM ER [Suspect]
     Indication: CONVULSION
     Route: 048
     Dates: start: 20140514, end: 20140613
  2. ZYPREXA [Concomitant]
  3. MIRTAZAPINE [Concomitant]
  4. RITALIN [Concomitant]

REACTIONS (7)
  - Product substitution issue [None]
  - Abnormal behaviour [None]
  - Convulsion [None]
  - Affective disorder [None]
  - Anger [None]
  - Fall [None]
  - Tooth fracture [None]
